FAERS Safety Report 10967357 (Version 1)
Quarter: 2015Q1

REPORT INFORMATION
  Report Type: Spontaneous
  Country: US (occurrence: US)
  Receive Date: 20150330
  Receipt Date: 20150330
  Transmission Date: 20150721
  Serious: No
  Sender: FDA-Public Use
  Company Number: US-SHIRE-US201502789

PATIENT
  Age: 5 Year
  Sex: Male

DRUGS (1)
  1. VYVANSE [Suspect]
     Active Substance: LISDEXAMFETAMINE DIMESYLATE
     Indication: ATTENTION DEFICIT/HYPERACTIVITY DISORDER
     Dosage: 20 MG, UNKNOWN
     Route: 048
     Dates: start: 20150323

REACTIONS (3)
  - Headache [Unknown]
  - Vomiting [Unknown]
  - Product use issue [Unknown]

NARRATIVE: CASE EVENT DATE: 20150323
